FAERS Safety Report 4996570-5 (Version None)
Quarter: 2006Q2

REPORT INFORMATION
  Report Type: 
  Country: None (occurrence: None)
  Receive Date: 20060505
  Receipt Date: 20060424
  Transmission Date: 20061013
  Serious: Yes (Disabling)
  Sender: FDA-Public Use
  Company Number: 2006040043

PATIENT
  Sex: Male

DRUGS (3)
  1. FELBATOL [Suspect]
     Indication: CONVULSION
  2. PROZAC [Concomitant]
  3. MYSOLINE [Concomitant]

REACTIONS (1)
  - BLINDNESS [None]
